FAERS Safety Report 6366201-0 (Version None)
Quarter: 2009Q3

REPORT INFORMATION
  Report Type: 
  Country: None (occurrence: None)
  Receive Date: 20090915
  Receipt Date: 20090827
  Transmission Date: 20100115
  Serious: Yes (Other)
  Sender: FDA-Public Use
  Company Number: 1000006651

PATIENT
  Age: 63 Year
  Sex: Male
  Weight: 115 kg

DRUGS (1)
  1. MEMANTINE HCL [Suspect]
     Dosage: 10 MG, ONCE, ORAL
     Route: 048
     Dates: start: 20090501, end: 20090501

REACTIONS (2)
  - BRONCHOSPASM [None]
  - CYANOSIS [None]
